FAERS Safety Report 13720474 (Version 1)
Quarter: 2017Q3

REPORT INFORMATION
  Report Type: Report from Study
  Country: US (occurrence: US)
  Receive Date: 20170706
  Receipt Date: 20170706
  Transmission Date: 20171127
  Serious: No
  Sender: FDA-Public Use
  Company Number: PHEH2017US020659

PATIENT

DRUGS (2)
  1. ILARIS [Suspect]
     Active Substance: CANAKINUMAB
     Indication: CRANIOPHARYNGIOMA
     Dosage: 60 MG, EVERY 4 WEEKS
     Route: 030
  2. ILARIS [Suspect]
     Active Substance: CANAKINUMAB
     Indication: PITUITARY TUMOUR BENIGN

REACTIONS (3)
  - Inappropriate schedule of drug administration [Unknown]
  - Product use in unapproved indication [Unknown]
  - Incorrect route of drug administration [Unknown]
